FAERS Safety Report 11507564 (Version 1)
Quarter: 2015Q3

REPORT INFORMATION
  Report Type: Spontaneous
  Country: US (occurrence: US)
  Receive Date: 20150903
  Receipt Date: 20150903
  Transmission Date: 20151125
  Serious: No
  Sender: FDA-Public Use
  Company Number: US-ELI_LILLY_AND_COMPANY-US200908005201

PATIENT
  Sex: Female

DRUGS (3)
  1. HUMALOG [Suspect]
     Active Substance: INSULIN LISPRO
  2. SYNTHROID [Concomitant]
     Active Substance: LEVOTHYROXINE SODIUM
  3. NOVOLIN [Concomitant]
     Active Substance: INSULIN HUMAN

REACTIONS (13)
  - Basedow^s disease [Not Recovered/Not Resolved]
  - Altered visual depth perception [Unknown]
  - Blood glucose increased [Unknown]
  - Dry eye [Recovering/Resolving]
  - Lacrimation increased [Unknown]
  - Abdominal pain upper [Unknown]
  - Diplopia [Recovering/Resolving]
  - Thyroid disorder [Unknown]
  - Facial operation [Unknown]
  - Visual impairment [Unknown]
  - Blood glucose decreased [Recovered/Resolved]
  - Exophthalmos [Unknown]
  - Incorrect dose administered [Unknown]

NARRATIVE: CASE EVENT DATE: 2003
